FAERS Safety Report 6276327-8 (Version None)
Quarter: 2009Q3

REPORT INFORMATION
  Report Type: 
  Country: None (occurrence: None)
  Receive Date: 20090722
  Receipt Date: 20090711
  Transmission Date: 20100115
  Serious: Yes (Other)
  Sender: FDA-Public Use
  Company Number: US-ROCHE-643841

PATIENT
  Age: 19 Year
  Sex: Male

DRUGS (1)
  1. ACCUTANE [Suspect]
     Indication: ACNE
     Route: 065
     Dates: start: 20070101

REACTIONS (10)
  - ARTHRALGIA [None]
  - CARDIAC DISORDER [None]
  - DEPRESSION [None]
  - ERECTILE DYSFUNCTION [None]
  - INFLAMMATORY BOWEL DISEASE [None]
  - LIBIDO DECREASED [None]
  - RESPIRATORY DISORDER [None]
  - SUICIDAL IDEATION [None]
  - URETHRAL ATROPHY [None]
  - XEROSIS [None]
